FAERS Safety Report 11308567 (Version 1)
Quarter: 2015Q3

REPORT INFORMATION
  Report Type: Spontaneous
  Country: US (occurrence: US)
  Receive Date: 20150724
  Receipt Date: 20150724
  Transmission Date: 20151125
  Serious: No
  Sender: FDA-Public Use
  Company Number: US-BIOGENIDEC-2015BI102922

PATIENT
  Sex: Female

DRUGS (1)
  1. TECFIDERA [Suspect]
     Active Substance: DIMETHYL FUMARATE
     Indication: MULTIPLE SCLEROSIS

REACTIONS (4)
  - Malaise [Not Recovered/Not Resolved]
  - Renal disorder [Not Recovered/Not Resolved]
  - Abasia [Not Recovered/Not Resolved]
  - Feeling abnormal [Not Recovered/Not Resolved]
